FAERS Safety Report 8036761-2 (Version None)
Quarter: 2012Q1

REPORT INFORMATION
  Report Type: 
  Country: None (occurrence: None)
  Receive Date: 20120109
  Receipt Date: 20111221
  Transmission Date: 20120608
  Serious: Yes (Hospitalization)
  Sender: FDA-Public Use
  Company Number: GGEL20111001379

PATIENT
  Age: 61 Year
  Sex: Male
  Weight: 93.441 kg

DRUGS (3)
  1. ASPIRIN [Concomitant]
  2. ZOCOR [Concomitant]
  3. AZELAIC ACID [Suspect]
     Indication: ROSACEA
     Dosage: STUDY DRUG WAS INTERRUPTED FROM 12 OCTOBER 2011 (MORNING) TO 13 OCTOBER 2011 (EVENING)
     Dates: start: 20111011

REACTIONS (14)
  - ELECTROCARDIOGRAM ST SEGMENT DEPRESSION [None]
  - VENTRICULAR HYPOKINESIA [None]
  - BLOOD PRESSURE SYSTOLIC INCREASED [None]
  - CHEST DISCOMFORT [None]
  - JUGULAR VEIN DISTENSION [None]
  - OEDEMA PERIPHERAL [None]
  - EXERCISE TOLERANCE DECREASED [None]
  - BACK PAIN [None]
  - NECK PAIN [None]
  - SCAN MYOCARDIAL PERFUSION ABNORMAL [None]
  - FLUSHING [None]
  - ANGINA UNSTABLE [None]
  - DYSPNOEA [None]
  - CORONARY ARTERY STENOSIS [None]
